FAERS Safety Report 22251103 (Version 1)
Quarter: 2023Q2

REPORT INFORMATION
  Report Type: Spontaneous
  Country: US (occurrence: None)
  Receive Date: 20230424
  Receipt Date: 20230424
  Transmission Date: 20230721
  Serious: Yes (Death)
  Sender: FDA-Public Use
  Company Number: None

PATIENT
  Age: 60 Year
  Sex: Female

DRUGS (14)
  1. AZATHIOPRINE [Suspect]
     Active Substance: AZATHIOPRINE
     Indication: Osteoarthritis
     Dosage: FREQUENCY : DAILY;?
     Route: 048
  2. RETACRIT [Suspect]
     Active Substance: EPOETIN ALFA-EPBX
     Indication: Osteoarthritis
     Dosage: OTHER QUANTITY : 40,000 UNITS;?FREQUENCY : MONTHLY;?
     Route: 048
  3. Calcitrol [Concomitant]
  4. CYCLOSPORINE [Concomitant]
     Active Substance: CYCLOSPORINE
  5. HUMALOG [Concomitant]
     Active Substance: INSULIN LISPRO
  6. Hydralazine HCI [Concomitant]
  7. Imuran [Concomitant]
  8. LASIX [Concomitant]
     Active Substance: FUROSEMIDE
  9. Levemir FlexPen [Concomitant]
  10. LIPITOR [Concomitant]
     Active Substance: ATORVASTATIN CALCIUM
  11. LIPITOR [Concomitant]
     Active Substance: ATORVASTATIN CALCIUM
  12. PREDNISONE [Concomitant]
  13. PROCARDIA [Concomitant]
     Active Substance: NIFEDIPINE
  14. TOPROL XL [Concomitant]
     Active Substance: METOPROLOL SUCCINATE

REACTIONS (1)
  - Death [None]
